FAERS Safety Report 16421689 (Version 1)
Quarter: 2019Q2

REPORT INFORMATION
  Report Type: Report from Study
  Country: US (occurrence: US)
  Receive Date: 20190612
  Receipt Date: 20190612
  Transmission Date: 20190711
  Serious: Yes (Other)
  Sender: FDA-Public Use
  Company Number: US-JNJFOC-20190615226

PATIENT
  Sex: Female

DRUGS (2)
  1. IMBRUVICA [Suspect]
     Active Substance: IBRUTINIB
     Indication: WALDENSTROM^S MACROGLOBULINAEMIA
     Route: 048
     Dates: start: 20180401
  2. IMBRUVICA [Suspect]
     Active Substance: IBRUTINIB
     Indication: WALDENSTROM^S MACROGLOBULINAEMIA
     Route: 048
     Dates: start: 20171110, end: 20180331

REACTIONS (6)
  - Surgery [Unknown]
  - Emotional disorder [Unknown]
  - Fatigue [Unknown]
  - Crying [Not Recovered/Not Resolved]
  - Dehydration [Recovered/Resolved]
  - Catheter site haemorrhage [Recovered/Resolved]
